FAERS Safety Report 20387038 (Version 1)
Quarter: 2022Q1

REPORT INFORMATION
  Report Type: Spontaneous
  Country: US (occurrence: US)
  Receive Date: 20220127
  Receipt Date: 20220127
  Transmission Date: 20220423
  Serious: No
  Sender: FDA-Public Use
  Company Number: US-ALLERGAN-2117469US

PATIENT
  Sex: Male

DRUGS (2)
  1. BOTOX COSMETIC [Suspect]
     Active Substance: ONABOTULINUMTOXINA
     Indication: Product used for unknown indication
     Dosage: UNK, SINGLE
  2. Covid Vaccine [Concomitant]

REACTIONS (5)
  - Poor quality product administered [Unknown]
  - Product storage error [Unknown]
  - Drug ineffective [Unknown]
  - Product distribution issue [Unknown]
  - Product complaint [Unknown]
